FAERS Safety Report 10241910 (Version 1)
Quarter: 2014Q2

REPORT INFORMATION
  Report Type: Spontaneous
  Country: GB (occurrence: GB)
  Receive Date: 20140617
  Receipt Date: 20140617
  Transmission Date: 20141212
  Serious: Yes (Hospitalization)
  Sender: FDA-Public Use
  Company Number: GB-GLAXOSMITHKLINE-B1002380A

PATIENT
  Age: 52 Year
  Sex: Female

DRUGS (5)
  1. BECONASE [Suspect]
     Route: 045
  2. FLUOXETINE [Concomitant]
     Dosage: 20MG PER DAY
     Route: 048
  3. LOSARTAN [Concomitant]
     Dosage: 100MG PER DAY
     Route: 048
  4. SIMVASTATIN [Concomitant]
     Dosage: 20MG PER DAY
     Route: 048
  5. MILK THISTLE [Concomitant]

REACTIONS (1)
  - Epistaxis [Recovered/Resolved]
